FAERS Safety Report 18637155 (Version 1)
Quarter: 2020Q4

REPORT INFORMATION
  Report Type: Spontaneous
  Country: US (occurrence: US)
  Receive Date: 20201218
  Receipt Date: 20201218
  Transmission Date: 20210114
  Serious: Yes (Other)
  Sender: FDA-Public Use
  Company Number: US-REGENERON PHARMACEUTICALS, INC.-2020-49762

PATIENT

DRUGS (2)
  1. EYLEA [Suspect]
     Active Substance: AFLIBERCEPT
     Indication: MACULAR OEDEMA
     Dosage: RIGHT EYE Q6W
     Route: 031
     Dates: start: 20200702, end: 20200702
  2. EYLEA [Suspect]
     Active Substance: AFLIBERCEPT
     Indication: RETINAL VEIN OCCLUSION
     Dosage: RIGHT EYE Q6W
     Route: 031
     Dates: start: 20150714

REACTIONS (3)
  - Ocular hyperaemia [Unknown]
  - Visual impairment [Unknown]
  - Corneal oedema [Unknown]

NARRATIVE: CASE EVENT DATE: 202007
